FAERS Safety Report 7990950-1 (Version None)
Quarter: 2011Q4

REPORT INFORMATION
  Report Type: 
  Country: None (occurrence: None)
  Receive Date: 20111215
  Receipt Date: 20111205
  Transmission Date: 20120403
  Serious: Yes (Death)
  Sender: FDA-Public Use
  Company Number: TPA2011A06545

PATIENT
  Age: 86 Year
  Sex: Female

DRUGS (2)
  1. FUROSEMIDE [Concomitant]
  2. ADENURIC (FEBUXOSTAT) [Suspect]
     Indication: GOUT
     Dosage: 80 MG (80 MG, 1 IN 1 D)
     Route: 048
     Dates: start: 20100714, end: 20100728

REACTIONS (7)
  - BACTERAEMIA [None]
  - HYPERKALAEMIA [None]
  - RENAL IMPAIRMENT [None]
  - PANCYTOPENIA [None]
  - ACIDOSIS [None]
  - FLUID OVERLOAD [None]
  - CEREBROVASCULAR ACCIDENT [None]
